FAERS Safety Report 7825012-7 (Version None)
Quarter: 2011Q4

REPORT INFORMATION
  Report Type: 
  Country: None (occurrence: None)
  Receive Date: 20111019
  Receipt Date: 20111005
  Transmission Date: 20120403
  Serious: Yes (Death, Hospitalization)
  Sender: FDA-Public Use
  Company Number: JP-MERCK-1110USA00696

PATIENT
  Age: 73 Year
  Sex: Male

DRUGS (5)
  1. KETOPROFEN [Concomitant]
     Route: 065
  2. JANUVIA [Suspect]
     Indication: TYPE 2 DIABETES MELLITUS
     Route: 048
     Dates: start: 20110221, end: 20110909
  3. HYZAAR [Suspect]
     Indication: HYPERTENSION
     Route: 048
     Dates: start: 20080428, end: 20110912
  4. NORVASC [Suspect]
     Indication: HYPERTENSION
     Route: 048
     Dates: start: 20031117, end: 20110912
  5. AMARYL [Suspect]
     Indication: TYPE 2 DIABETES MELLITUS
     Route: 048
     Dates: end: 20110912

REACTIONS (1)
  - INTERSTITIAL LUNG DISEASE [None]
